FAERS Safety Report 14938056 (Version 2)
Quarter: 2018Q2

REPORT INFORMATION
  Report Type: Spontaneous
  Country: GB (occurrence: GB)
  Receive Date: 20180525
  Receipt Date: 20180614
  Transmission Date: 20180711
  Serious: Yes (Hospitalization)
  Sender: FDA-Public Use
  Company Number: GB-UCBSA-2018021797

PATIENT
  Age: 32 Year
  Sex: Male

DRUGS (3)
  1. BRIVIACT [Suspect]
     Active Substance: BRIVARACETAM
     Indication: EPILEPSY
     Dosage: 25 MG, 2X/DAY (BID)
     Route: 048
  2. CLOBAZAM [Concomitant]
     Active Substance: CLOBAZAM
     Indication: EPILEPSY
     Dosage: UNK
  3. ESLICARBAZEPINE [Concomitant]
     Active Substance: ESLICARBAZEPINE
     Indication: EPILEPSY
     Dosage: UNK

REACTIONS (6)
  - Drug dose omission [Unknown]
  - Drug ineffective [Unknown]
  - Hypotension [Unknown]
  - Heart rate decreased [Unknown]
  - Off label use [Unknown]
  - Seizure [Unknown]
